FAERS Safety Report 22295148 (Version 1)
Quarter: 2023Q2

REPORT INFORMATION
  Report Type: Spontaneous
  Country: CA (occurrence: CA)
  Receive Date: 20230508
  Receipt Date: 20230508
  Transmission Date: 20230722
  Serious: Yes (Other)
  Sender: FDA-Public Use
  Company Number: CA-ORGANON-O2305CAN000555

PATIENT
  Age: 20 Year
  Sex: Female

DRUGS (1)
  1. NEXPLANON [Suspect]
     Active Substance: ETONOGESTREL
     Dosage: NEXPLANON SINGLE USE APPLICATOR
     Route: 058

REACTIONS (4)
  - Implant site oedema [Unknown]
  - Implant site pain [Unknown]
  - Skin implant removal [Unknown]
  - Skin striae [Unknown]
